FAERS Safety Report 9333421 (Version 1)
Quarter: 2013Q2

REPORT INFORMATION
  Report Type: Spontaneous
  Country: US (occurrence: US)
  Receive Date: 20130606
  Receipt Date: 20130606
  Transmission Date: 20140414
  Serious: No
  Sender: FDA-Public Use
  Company Number: US-GLAXOSMITHKLINE-A1017036A

PATIENT
  Age: 2 Year
  Sex: Female

DRUGS (4)
  1. LAMICTAL [Suspect]
     Indication: EPILEPSY
     Dosage: 2TAB TWICE PER DAY
     Route: 048
     Dates: start: 20130220, end: 20130304
  2. UNKNOWN DRUG [Concomitant]
  3. QUINIDINE [Concomitant]
  4. TRILEPTAL [Concomitant]

REACTIONS (2)
  - Rash [Recovered/Resolved]
  - Rash macular [Unknown]
